FAERS Safety Report 6108708-7 (Version None)
Quarter: 2009Q1

REPORT INFORMATION
  Report Type: 
  Country: None (occurrence: None)
  Receive Date: 20090306
  Receipt Date: 20090107
  Transmission Date: 20090719
  Serious: Yes (Death, Hospitalization)
  Sender: FDA-Public Use
  Company Number: DSA_62447_2009

PATIENT
  Age: 41 Year
  Sex: Female

DRUGS (4)
  1. DIAZEPAM [Suspect]
     Indication: SEDATION
     Dosage: DF ORAL
     Route: 048
  2. FLECAINIDE ACETATE [Suspect]
     Indication: DRUG USE FOR UNKNOWN INDICATION
     Dosage: 100 MG X 12 ORAL
     Route: 048
  3. PROPOFOL [Suspect]
     Indication: SEDATION
     Dosage: DF
  4. AMIODARONE HCL [Suspect]
     Indication: CARDIAC MONITORING ABNORMAL
     Dosage: DF

REACTIONS (10)
  - ATRIOVENTRICULAR BLOCK FIRST DEGREE [None]
  - BLOOD GLUCOSE INCREASED [None]
  - BLOOD PRESSURE DECREASED [None]
  - BUNDLE BRANCH BLOCK RIGHT [None]
  - CARDIAC ARREST [None]
  - COMPLETED SUICIDE [None]
  - CONVULSION [None]
  - ELECTROCARDIOGRAM QRS COMPLEX PROLONGED [None]
  - POISONING [None]
  - SINUS BRADYCARDIA [None]
